FAERS Safety Report 5568954-8 (Version None)
Quarter: 2007Q4

REPORT INFORMATION
  Report Type: 
  Country: None (occurrence: None)
  Receive Date: 20071220
  Receipt Date: 20070412
  Transmission Date: 20080405
  Serious: No
  Sender: FDA-Public Use
  Company Number: A0646114A

PATIENT
  Age: 80 Year
  Sex: Male

DRUGS (2)
  1. AVODART [Suspect]
     Indication: BENIGN PROSTATIC HYPERPLASIA
     Dosage: .5MG PER DAY
     Route: 048
     Dates: end: 20070101
  2. TERAZOSIN HCL [Concomitant]

REACTIONS (2)
  - BREAST PAIN [None]
  - BREAST SWELLING [None]
